FAERS Safety Report 8821028 (Version 2)
Quarter: 2012Q4

REPORT INFORMATION
  Report Type: 
  Country: GB (occurrence: GB)
  Receive Date: 20121002
  Receipt Date: 20121011
  Transmission Date: 20130627
  Serious: Yes (Other)
  Sender: FDA-Public Use
  Company Number: GB-WATSON-2012-16689

PATIENT
  Age: 78 Year
  Sex: Female
  Weight: 50 kg

DRUGS (6)
  1. RISPERIDONE (UNKNOWN) [Suspect]
     Indication: SCHIZOPHRENIA
     Dosage: .5 mg, bid
     Route: 048
  2. RISPERIDONE (UNKNOWN) [Suspect]
     Dosage: 2 mg, bid/Dosage form: unspecified
     Route: 048
     Dates: start: 20120518
  3. RISPERIDONE (UNKNOWN) [Suspect]
     Dosage: 1 mg, bid/dosage form:unspecified
     Route: 048
     Dates: start: 20120606
  4. XEPLION [Suspect]
     Indication: SCHIZOPHRENIA
     Dosage: 100 mg
     Route: 030
     Dates: start: 20120518
  5. XEPLION [Suspect]
     Dosage: 75 mg
     Route: 030
     Dates: start: 20120525
  6. XEPLION [Suspect]
     Dosage: 100 mg
     Route: 030
     Dates: start: 20120615

REACTIONS (3)
  - Psychotic disorder [Not Recovered/Not Resolved]
  - Inappropriate schedule of drug administration [Unknown]
  - Incorrect dose administered [Unknown]
